FAERS Safety Report 8967333 (Version 1)
Quarter: 2012Q4

REPORT INFORMATION
  Report Type: 
  Country: US (occurrence: US)
  Receive Date: 20121214
  Receipt Date: 20121214
  Transmission Date: 20130627
  Serious: No
  Sender: FDA-Public Use
  Company Number: US-GLAXOSMITHKLINE-A0998463A

PATIENT
  Age: 64 Year
  Sex: Female
  Weight: 111.4 kg

DRUGS (8)
  1. FLONASE [Suspect]
     Indication: SINUSITIS
  2. HUMIRA [Concomitant]
     Indication: PSORIASIS
     Dates: start: 2011
  3. METFORMIN [Concomitant]
     Indication: DIABETES MELLITUS
     Dates: start: 2011
  4. CLOBETASOL [Concomitant]
  5. NADOLOL [Concomitant]
  6. CALCIUM [Concomitant]
     Indication: SUPPLEMENTATION THERAPY
  7. VITAMIN D [Concomitant]
     Indication: SUPPLEMENTATION THERAPY
  8. MULTIVITAMIN [Concomitant]
     Indication: SUPPLEMENTATION THERAPY

REACTIONS (1)
  - Dysgeusia [Unknown]
